FAERS Safety Report 8555688-0 (Version None)
Quarter: 2012Q3

REPORT INFORMATION
  Report Type: 
  Country: None (occurrence: None)
  Receive Date: 20120801
  Receipt Date: 20120718
  Transmission Date: 20120928
  Serious: Yes (Hospitalization)
  Sender: FDA-Public Use
  Company Number: JP-MYLANLABS-2012S1015045

PATIENT
  Age: 6 Decade
  Sex: Male

DRUGS (4)
  1. PRAMIPEXOLE DIHYCHLORIDE [Concomitant]
     Indication: PARKINSON'S DISEASE
     Dosage: 3MG DAILY
     Route: 065
  2. CARBIDOPA AND LEVODOPA [Suspect]
     Indication: PARKINSON'S DISEASE
     Dosage: 250MG DAILY
     Route: 065
  3. DROXIDOPA [Suspect]
     Indication: ORTHOSTATIC HYPOTENSION
     Dosage: 200MG
     Route: 065
  4. DROXIDOPA [Suspect]
     Indication: DIZZINESS
     Dosage: 200MG
     Route: 065

REACTIONS (3)
  - MANIA [None]
  - DOPAMINE DYSREGULATION SYNDROME [None]
  - DYSKINESIA [None]
